FAERS Safety Report 14651360 (Version 1)
Quarter: 2018Q1

REPORT INFORMATION
  Report Type: Spontaneous
  Country: US (occurrence: US)
  Receive Date: 20180316
  Receipt Date: 20180316
  Transmission Date: 20180509
  Serious: No
  Sender: FDA-Public Use
  Company Number: None

PATIENT
  Age: 27 Year
  Sex: Female
  Weight: 90.72 kg

DRUGS (3)
  1. NEXPLANON [Suspect]
     Active Substance: ETONOGESTREL
  2. MELATONIN [Concomitant]
     Active Substance: MELATONIN
  3. ONCE A DAY VITAMINS [Concomitant]

REACTIONS (6)
  - Acne [None]
  - Alopecia [None]
  - Depression [None]
  - Weight increased [None]
  - Impaired work ability [None]
  - Quality of life decreased [None]

NARRATIVE: CASE EVENT DATE: 20170401
